FAERS Safety Report 6218817-X (Version None)
Quarter: 2009Q2

REPORT INFORMATION
  Report Type: 
  Country: None (occurrence: None)
  Receive Date: 20090608
  Receipt Date: 20090525
  Transmission Date: 20091009
  Serious: Yes (Other)
  Sender: FDA-Public Use
  Company Number: SE-ELI_LILLY_AND_COMPANY-SE200905005778

PATIENT
  Age: 21 Year
  Sex: Female

DRUGS (1)
  1. FONTEX [Suspect]
     Indication: DEPRESSION
     Dosage: 20 MG, DAILY (1/D)
     Dates: start: 19991014, end: 19991110

REACTIONS (4)
  - COAGULATION TIME PROLONGED [None]
  - DYSGEUSIA [None]
  - HAEMATOMA [None]
  - MENSTRUAL DISORDER [None]
